FAERS Safety Report 13740580 (Version 3)
Quarter: 2017Q3

REPORT INFORMATION
  Report Type: Spontaneous
  Country: CA (occurrence: CA)
  Receive Date: 20170711
  Receipt Date: 20170903
  Transmission Date: 20171127
  Serious: Yes (Death, Other)
  Sender: FDA-Public Use
  Company Number: CA-BEH-2017080988

PATIENT
  Age: 62 Year
  Sex: Male

DRUGS (13)
  1. LASIX [Concomitant]
     Active Substance: FUROSEMIDE
     Dosage: 40 MG, TOT
     Route: 042
     Dates: start: 20161022
  2. TYLENOL [Concomitant]
     Active Substance: ACETAMINOPHEN
     Dosage: 500 MG, TOT
     Route: 065
     Dates: start: 20161022
  3. ALBUREX [Suspect]
     Active Substance: ALBUMIN HUMAN
     Dosage: 2 DOSES
     Route: 065
     Dates: start: 20161021
  4. PROTEIN SUPPLEMENTS [Concomitant]
     Active Substance: PROTEIN
     Dosage: 20 ML, UNK
     Route: 065
     Dates: start: 20161022
  5. KCL [Concomitant]
     Active Substance: POTASSIUM CHLORIDE
     Dosage: UNK
     Route: 048
     Dates: start: 20161022
  6. INSULIN [Concomitant]
     Active Substance: INSULIN NOS
     Dosage: 125 IU, TOT
     Route: 065
  7. ALBUREX [Suspect]
     Active Substance: ALBUMIN HUMAN
     Indication: SEPTIC SHOCK
     Dosage: UNK
     Route: 065
     Dates: start: 20161022, end: 20161022
  8. TAZOCIN [Suspect]
     Active Substance: PIPERACILLIN SODIUM\TAZOBACTAM SODIUM
     Dosage: 3 G, UNK
     Route: 042
     Dates: start: 20161022
  9. HEPARIN [Concomitant]
     Active Substance: HEPARIN SODIUM
     Dosage: 5000 IU, UNK
     Route: 065
  10. DEXTROSE. [Concomitant]
     Active Substance: DEXTROSE
     Dosage: 1000 ML, TOT
     Route: 042
     Dates: start: 20161022
  11. NORMAL SALINE [Concomitant]
     Active Substance: SODIUM CHLORIDE
     Dosage: 250 ML, UNK
     Route: 065
     Dates: start: 20161022
  12. ALBUREX [Suspect]
     Active Substance: ALBUMIN HUMAN
     Dosage: 1 DOSE
     Route: 065
     Dates: start: 20161020
  13. TAZOCIN [Suspect]
     Active Substance: PIPERACILLIN SODIUM\TAZOBACTAM SODIUM
     Dosage: 3 G, UNK
     Route: 042
     Dates: start: 20161022

REACTIONS (15)
  - Livedo reticularis [Recovered/Resolved]
  - Abdominal pain [Recovered/Resolved]
  - Allergic transfusion reaction [Recovered/Resolved]
  - Tachypnoea [Recovered/Resolved]
  - Hypotension [Recovered/Resolved]
  - Tachycardia [Recovered/Resolved]
  - Arrhythmia [Recovered/Resolved]
  - Chills [Recovered/Resolved]
  - Erythema [Recovered/Resolved]
  - Generalised oedema [Recovered/Resolved]
  - Rash papular [Recovered/Resolved]
  - Discomfort [Recovered/Resolved]
  - Bronchospasm [Recovered/Resolved]
  - Hyperhidrosis [Recovered/Resolved]
  - Wheezing [Recovered/Resolved]

NARRATIVE: CASE EVENT DATE: 20161022
